FAERS Safety Report 23843564 (Version 1)
Quarter: 2024Q2

REPORT INFORMATION
  Report Type: Spontaneous
  Country: US (occurrence: None)
  Receive Date: 20240510
  Receipt Date: 20240510
  Transmission Date: 20240716
  Serious: Yes (Hospitalization)
  Sender: FDA-Public Use
  Company Number: None

PATIENT
  Age: 59 Year
  Sex: Female
  Weight: 47.63 kg

DRUGS (2)
  1. PEMBROLIZUMAB [Suspect]
     Active Substance: PEMBROLIZUMAB
     Indication: Squamous cell carcinoma of head and neck
     Dosage: OTHER FREQUENCY : ONCE EVERY 6 WEEKS;?
     Dates: start: 20231102, end: 20240327
  2. OLAPARIB [Suspect]
     Active Substance: OLAPARIB
     Indication: Squamous cell carcinoma of head and neck
     Dosage: FREQUENCY : TWICE A DAY;?
     Route: 048
     Dates: start: 20231102, end: 20240425

REACTIONS (8)
  - Failure to thrive [None]
  - Swelling face [None]
  - Cellulitis [None]
  - Vision blurred [None]
  - Photopsia [None]
  - Blindness [None]
  - Optic neuritis [None]
  - Open angle glaucoma [None]

NARRATIVE: CASE EVENT DATE: 20240426
